FAERS Safety Report 14266326 (Version 1)
Quarter: 2017Q4

REPORT INFORMATION
  Report Type: Spontaneous
  Country: US (occurrence: US)
  Receive Date: 20171210
  Receipt Date: 20171210
  Transmission Date: 20180321
  Serious: Yes (Hospitalization)
  Sender: FDA-Public Use
  Company Number: PHHY2017US180748

PATIENT
  Age: 77 Year
  Sex: Male

DRUGS (3)
  1. GLIMEPIRIDE. [Concomitant]
     Active Substance: GLIMEPIRIDE
     Indication: TYPE 2 DIABETES MELLITUS
     Dosage: 1 MG, QD
     Route: 048
  2. INSULIN [Concomitant]
     Active Substance: INSULIN NOS
     Indication: TYPE 2 DIABETES MELLITUS
     Dosage: 50 U QD , (40 UNITS EVERY MORNING AND 10 UNITS EVERY EVENING)
     Route: 065
  3. LINEZOLID. [Suspect]
     Active Substance: LINEZOLID
     Indication: URINARY TRACT INFECTION STAPHYLOCOCCAL
     Dosage: 600 MG, BID
     Route: 065

REACTIONS (4)
  - Product use in unapproved indication [Unknown]
  - Hypoglycaemia [Recovered/Resolved]
  - Nausea [Unknown]
  - Chills [Unknown]
